FAERS Safety Report 5758756-1 (Version None)
Quarter: 2008Q2

REPORT INFORMATION
  Report Type: 
  Country: None (occurrence: None)
  Receive Date: 20080602
  Receipt Date: 20080519
  Transmission Date: 20081010
  Serious: Yes (Other)
  Sender: FDA-Public Use
  Company Number: CHNY2008FR01240

PATIENT
  Age: 64 Year
  Sex: Female
  Weight: 46 kg

DRUGS (4)
  1. SCOPOLAMINE [Suspect]
     Indication: MOTION SICKNESS
     Dosage: 1 MG, TRANSDERMAL
     Route: 062
     Dates: start: 20080211, end: 20080212
  2. SCOPOLAMINE [Suspect]
     Indication: PROPHYLAXIS
     Dosage: 1 MG, TRANSDERMAL
     Route: 062
     Dates: start: 20080211, end: 20080212
  3. AVLOCARDYL (PROPRANOLOL) [Concomitant]
  4. IRBESARTAN [Concomitant]

REACTIONS (11)
  - AGITATION [None]
  - APHASIA [None]
  - BALANCE DISORDER [None]
  - DELIRIUM [None]
  - DISORIENTATION [None]
  - HALLUCINATION [None]
  - IRIS DISORDER [None]
  - MENTAL DISORDER [None]
  - MICTURITION DISORDER [None]
  - MYDRIASIS [None]
  - URINARY INCONTINENCE [None]
